FAERS Safety Report 9601033 (Version 2)
Quarter: 2013Q4

REPORT INFORMATION
  Report Type: Spontaneous
  Country: US (occurrence: US)
  Receive Date: 20131004
  Receipt Date: 20131004
  Transmission Date: 20140711
  Serious: No
  Sender: FDA-Public Use
  Company Number: US-AMGEN-USASP2013038403

PATIENT
  Age: 44 Year
  Sex: Female
  Weight: 57.14 kg

DRUGS (7)
  1. ENBREL [Suspect]
     Indication: PRODUCT USED FOR UNKNOWN INDICATION
     Dosage: 50 MG, QWK
     Route: 058
     Dates: start: 2008, end: 201304
  2. TACLONEX [Concomitant]
     Dosage: UNK
  3. DOVONEX [Concomitant]
     Dosage: UNK
  4. VITAMIN D                          /00107901/ [Concomitant]
     Dosage: 1000 UNIT, UNK
  5. IRON [Concomitant]
     Dosage: 50 MG, UNK
  6. ADVIL                              /00109201/ [Concomitant]
     Dosage: 200 MG, UNK
  7. LOESTRIN [Concomitant]
     Dosage: 21 TAB, 1.5/30 UNK

REACTIONS (2)
  - Therapeutic response decreased [Recovered/Resolved]
  - Psoriasis [Unknown]
